FAERS Safety Report 11516036 (Version 1)
Quarter: 2015Q3

REPORT INFORMATION
  Report Type: Spontaneous
  Country: US (occurrence: US)
  Receive Date: 20150917
  Receipt Date: 20150917
  Transmission Date: 20151125
  Serious: Yes (Death, Other)
  Sender: FDA-Public Use
  Company Number: US-TAKEDA-2014TUS004776

PATIENT

DRUGS (4)
  1. ACTOS [Suspect]
     Active Substance: PIOGLITAZONE HYDROCHLORIDE
     Indication: TYPE 2 DIABETES MELLITUS
     Dosage: 15 MG, UNK
     Route: 048
  2. METFORMIN [Concomitant]
     Active Substance: METFORMIN HYDROCHLORIDE
     Dosage: 100 MG, UNK
     Dates: start: 2002, end: 2005
  3. GLUCOPHAGE [Concomitant]
     Active Substance: METFORMIN HYDROCHLORIDE
     Dosage: 100 MG, UNK
     Dates: start: 2002, end: 2002
  4. GLUCOTROL [Concomitant]
     Active Substance: GLIPIZIDE
     Dosage: 10 MG, UNK
     Dates: start: 2002, end: 2005

REACTIONS (2)
  - Death [Fatal]
  - Bladder cancer [Unknown]

NARRATIVE: CASE EVENT DATE: 2007
